FAERS Safety Report 5768061-5 (Version None)
Quarter: 2008Q2

REPORT INFORMATION
  Report Type: 
  Country: None (occurrence: None)
  Receive Date: 20080612
  Receipt Date: 20080108
  Transmission Date: 20081010
  Serious: No
  Sender: FDA-Public Use
  Company Number: US-ASTRAZENECA-2007UW25408

PATIENT
  Age: 82 Year
  Sex: Female
  Weight: 79.4 kg

DRUGS (5)
  1. FASLODEX [Suspect]
     Indication: BREAST CANCER
     Route: 030
     Dates: start: 20060401
  2. METFORMIN HCL [Concomitant]
  3. MOTRIN [Concomitant]
  4. K-TAB [Concomitant]
  5. FOSAMAX [Concomitant]

REACTIONS (2)
  - ARTHRITIS [None]
  - WEIGHT INCREASED [None]
